FAERS Safety Report 5143765-6 (Version None)
Quarter: 2006Q4

REPORT INFORMATION
  Report Type: 
  Country: None (occurrence: None)
  Receive Date: 20061106
  Receipt Date: 20061026
  Transmission Date: 20070319
  Serious: Yes (Other)
  Sender: FDA-Public Use
  Company Number: MX-JNJFOC-20061005907

PATIENT
  Age: 15 Year
  Sex: Female

DRUGS (4)
  1. LEVOFLOXACIN [Suspect]
     Indication: SINUSITIS
     Route: 048
     Dates: start: 20060922, end: 20060927
  2. MOMETASONE FUROATE [Concomitant]
     Indication: SINUSITIS
     Route: 045
  3. AMBROXOL [Concomitant]
     Indication: SINUSITIS
     Route: 048
  4. LORATADINE [Concomitant]
     Indication: SINUSITIS
     Route: 048

REACTIONS (2)
  - ARTHRALGIA [None]
  - LIGAMENT RUPTURE [None]
